FAERS Safety Report 15314325 (Version 1)
Quarter: 2018Q3

REPORT INFORMATION
  Report Type: Spontaneous
  Country: US (occurrence: US)
  Receive Date: 20180824
  Receipt Date: 20180824
  Transmission Date: 20181010
  Serious: No
  Sender: FDA-Public Use
  Company Number: US-PFIZER INC-2018341008

PATIENT
  Age: 67 Year
  Sex: Female

DRUGS (1)
  1. CADUET [Suspect]
     Active Substance: AMLODIPINE BESYLATE\ATORVASTATIN CALCIUM
     Dosage: UNK[AMLODIPINE BESYLATE 5MG]/[ATORVASTATIN CALCIUM 20MG]
     Route: 048

REACTIONS (2)
  - Contraindicated drug prescribed [Unknown]
  - Drug hypersensitivity [Unknown]
